FAERS Safety Report 6595135-1 (Version None)
Quarter: 2010Q1

REPORT INFORMATION
  Report Type: 
  Country: None (occurrence: None)
  Receive Date: 20100212
  Receipt Date: 20100202
  Transmission Date: 20100710
  Serious: Yes (Death)
  Sender: FDA-Public Use
  Company Number: IDA-00328

PATIENT
  Age: 38 Year
  Sex: Male

DRUGS (8)
  1. INDERAL [Suspect]
     Dosage: 80 MG DAILY ORAL
     Route: 048
     Dates: end: 20091223
  2. METHADONE HCL [Suspect]
     Dosage: 175 MG DAILY ORAL
     Route: 048
     Dates: end: 20091223
  3. NERVIFENE (CHLORAL HYDRATE) [Suspect]
     Dosage: 2 MG DAILY ORAL
     Route: 048
     Dates: end: 20091223
  4. RISPERDAL [Suspect]
     Dosage: 1 MG DAILY ORAL
     Route: 048
     Dates: end: 20091223
  5. OXAZEPAM [Suspect]
     Dosage: 150 MG DAILY ORAL
     Route: 048
     Dates: end: 20091223
  6. NEXIUM ORAL (ESOMEPRAZOLE MAGNESIUM) [Concomitant]
  7. EPRIL (ENALAPRIL MALEATE) [Concomitant]
  8. TOREM (TORASEMIDE) [Concomitant]

REACTIONS (5)
  - CARDIAC ARREST [None]
  - CARDIO-RESPIRATORY ARREST [None]
  - INTENTIONAL OVERDOSE [None]
  - MALAISE [None]
  - VENTRICULAR FIBRILLATION [None]
